FAERS Safety Report 5089114-3 (Version None)
Quarter: 2006Q3

REPORT INFORMATION
  Report Type: 
  Country: None (occurrence: None)
  Receive Date: 20060727
  Receipt Date: 20060628
  Transmission Date: 20061208
  Serious: Yes (Other)
  Sender: FDA-Public Use
  Company Number: 2006083284

PATIENT
  Age: 43 Year
  Sex: Female
  Weight: 53.978 kg

DRUGS (3)
  1. LYRICA [Suspect]
     Indication: NEURALGIA
     Dosage: 150 MG (DAILY), UNKNOWN
     Dates: start: 20060415
  2. WELLBUTRIN [Concomitant]
  3. ATIVAN [Concomitant]

REACTIONS (4)
  - DRUG INEFFECTIVE [None]
  - INCREASED APPETITE [None]
  - WEIGHT FLUCTUATION [None]
  - WEIGHT INCREASED [None]
